FAERS Safety Report 10211622 (Version 1)
Quarter: 2014Q2

REPORT INFORMATION
  Report Type: Spontaneous
  Country: US (occurrence: US)
  Receive Date: 20140602
  Receipt Date: 20140602
  Transmission Date: 20141212
  Serious: No
  Sender: FDA-Public Use
  Company Number: US-PFIZER INC-2014148569

PATIENT
  Age: 80 Year
  Sex: Male
  Weight: 95.24 kg

DRUGS (8)
  1. XELJANZ [Suspect]
     Indication: RHEUMATOID ARTHRITIS
     Dosage: 5 MG, 2X/DAY
     Route: 048
     Dates: start: 201404
  2. SULFASALAZINE [Concomitant]
     Dosage: 500 MG, 2X/DAY
  3. LEVOXYL [Concomitant]
     Dosage: 0.1 UG, 1X/DAY
  4. CRESTOR [Concomitant]
     Dosage: 5 MG, 1X/DAY
  5. OMEPRAZOLE [Concomitant]
     Dosage: 40 MG, 1X/DAY
  6. LOSARTAN [Concomitant]
     Dosage: 50 MG, 1X/DAY
  7. AMLODIPINE [Concomitant]
     Dosage: 10 MG, 1X/DAY
  8. MELOXICAM [Concomitant]
     Dosage: 7.5 MG, 2X/DAY

REACTIONS (2)
  - Fatigue [Not Recovered/Not Resolved]
  - Dyspnoea [Not Recovered/Not Resolved]
